FAERS Safety Report 13269716 (Version 3)
Quarter: 2018Q3

REPORT INFORMATION
  Report Type: Spontaneous
  Country: JP (occurrence: JP)
  Receive Date: 20170224
  Receipt Date: 20180906
  Transmission Date: 20181010
  Serious: Yes (Other)
  Sender: FDA-Public Use
  Company Number: JP-BAYER-2017-037340

PATIENT
  Sex: Female

DRUGS (4)
  1. BAYASPIRIN 100 MG [Suspect]
     Active Substance: ASPIRIN
     Indication: COMPLICATION OF PREGNANCY
  2. BAYASPIRIN 100 MG [Suspect]
     Active Substance: ASPIRIN
     Indication: ANTIPHOSPHOLIPID SYNDROME
  3. HEPARIN [Suspect]
     Active Substance: HEPARIN SODIUM
     Indication: ANTIPHOSPHOLIPID SYNDROME
     Dosage: UNK
  4. HEPARIN [Suspect]
     Active Substance: HEPARIN SODIUM
     Indication: COMPLICATION OF PREGNANCY

REACTIONS (4)
  - Abortion spontaneous [None]
  - Maternal exposure during pregnancy [None]
  - Off label use [None]
  - Product use in unapproved indication [None]
